FAERS Safety Report 9394953 (Version 1)
Quarter: 2013Q3

REPORT INFORMATION
  Report Type: Spontaneous
  Country: US (occurrence: US)
  Receive Date: 20130711
  Receipt Date: 20130711
  Transmission Date: 20140515
  Serious: Yes (Death)
  Sender: FDA-Public Use
  Company Number: US-COVIDIEN/TYCO HEALTHCARE/MALLINCKRODT-T201300816

PATIENT
  Age: 57 Year
  Sex: Male

DRUGS (4)
  1. OXYCODONE [Suspect]
     Indication: PAIN
     Dosage: 1/2 TO 1 TAB, EVERY 6 HOURS
     Dates: start: 201301
  2. LORAZEPAM [Concomitant]
     Dosage: UNK
  3. GLUCOSAMINE [Concomitant]
     Dosage: UNK
  4. OXYCODONE [Concomitant]

REACTIONS (2)
  - Pain [Not Recovered/Not Resolved]
  - Drug ineffective [Not Recovered/Not Resolved]
